FAERS Safety Report 18380526 (Version 3)
Quarter: 2020Q4

REPORT INFORMATION
  Report Type: Report from Study
  Country: US (occurrence: US)
  Receive Date: 20201013
  Receipt Date: 20201109
  Transmission Date: 20210114
  Serious: Yes (Hospitalization)
  Sender: FDA-Public Use
  Company Number: US-ROCHE-2632765

PATIENT
  Age: 19 Year
  Sex: Male
  Weight: 113 kg

DRUGS (13)
  1. POLATUZUMAB VEDOTIN. [Suspect]
     Active Substance: POLATUZUMAB VEDOTIN
     Indication: NON-HODGKIN^S LYMPHOMA
     Dosage: ON 09/SEP/2020, MOST RECENT DOSE OF POLATUZUMAB VEDOTIN 214.2  MG PRIOR TO AE ONSET
     Route: 042
     Dates: start: 20200507
  2. APIXABAN [Concomitant]
     Active Substance: APIXABAN
     Route: 048
     Dates: start: 20200413
  3. ZYLOPRIM [Concomitant]
     Active Substance: ALLOPURINOL
     Route: 048
     Dates: start: 20200504
  4. ALLOPURINOL. [Concomitant]
     Active Substance: ALLOPURINOL
     Route: 048
     Dates: start: 20200504
  5. CYCLOPHOSPHAMIDE. [Suspect]
     Active Substance: CYCLOPHOSPHAMIDE
     Indication: NON-HODGKIN^S LYMPHOMA
     Dosage: ON 09/SEP/2020, MOST RECENT DOSE OF CYCLOPHOSPHAMIDE 1830 MG PRIOR TO AE ONSET
     Route: 042
     Dates: start: 20200507
  6. ACETAMINOPHEN. [Concomitant]
     Active Substance: ACETAMINOPHEN
     Route: 048
     Dates: start: 20200623, end: 20200623
  7. PREDNISONE. [Suspect]
     Active Substance: PREDNISONE
     Indication: NON-HODGKIN^S LYMPHOMA
     Dosage: ON 09/SEP/2020, MOST RECENT DOSE OF PREDNISONE 100 MG PRIOR TO AE ONSET
     Route: 048
     Dates: start: 20200507
  8. PREDNISONE. [Concomitant]
     Active Substance: PREDNISONE
     Route: 048
     Dates: start: 20200504
  9. REMDESIVIR. [Concomitant]
     Active Substance: REMDESIVIR
     Route: 042
     Dates: start: 20200626, end: 20200626
  10. MOSUNETUZUMAB. [Suspect]
     Active Substance: MOSUNETUZUMAB
     Indication: NON-HODGKIN^S LYMPHOMA
     Dosage: DATE OF MOST RECENT DOSE OF STUDY DRUG MOSUNTUZUMAB (30 MG)  PRIOR TO AE ONSET: 17/JUN/2020?DATE OF
     Route: 042
     Dates: start: 20200508
  11. DOXORUBICIN [Suspect]
     Active Substance: DOXORUBICIN
     Indication: NON-HODGKIN^S LYMPHOMA
     Dosage: ON 09/SEP/2020, MOST RECENT DOSE OF DOXORUBICIN 122 MG PRIOR TO AE ONSET
     Route: 042
     Dates: start: 20200507
  12. ACETAMINOPHEN;HYDROCODONE [Concomitant]
     Active Substance: ACETAMINOPHEN\HYDROCODONE
     Route: 048
     Dates: start: 20200504
  13. ALLOPURINOL. [Concomitant]
     Active Substance: ALLOPURINOL
     Route: 048
     Dates: start: 20200518, end: 20200527

REACTIONS (2)
  - Dyspnoea [Recovered/Resolved]
  - COVID-19 [Recovered/Resolved]

NARRATIVE: CASE EVENT DATE: 20200623
